FAERS Safety Report 9923326 (Version 2)
Quarter: 2014Q1

REPORT INFORMATION
  Report Type: Spontaneous
  Country: US (occurrence: US)
  Receive Date: 20140225
  Receipt Date: 20140225
  Transmission Date: 20141002
  Serious: No
  Sender: FDA-Public Use
  Company Number: US-AMGEN-USASP2013069094

PATIENT
  Age: 56 Year
  Sex: Female
  Weight: 91.7 kg

DRUGS (7)
  1. ENBREL [Suspect]
     Indication: ANKYLOSING SPONDYLITIS
     Dosage: 50 MG, QWK
     Route: 058
     Dates: start: 20130717
  2. CORTISONE [Concomitant]
     Dosage: UNK
     Dates: start: 20130910, end: 20130910
  3. DICLOFENAC [Concomitant]
     Dosage: UNK
  4. FLECTOR                            /00372302/ [Concomitant]
     Dosage: UNK
  5. FENOFIBRATE [Concomitant]
     Dosage: UNK
  6. LEVOTHYROXINE [Concomitant]
     Dosage: UNK
  7. ZOLOFT [Concomitant]
     Dosage: UNK

REACTIONS (5)
  - Back pain [Recovering/Resolving]
  - Musculoskeletal stiffness [Not Recovered/Not Resolved]
  - Cough [Recovered/Resolved]
  - Nasal congestion [Recovered/Resolved]
  - Nasopharyngitis [Recovered/Resolved]
